FAERS Safety Report 5916981-0 (Version None)
Quarter: 2008Q4

REPORT INFORMATION
  Report Type: 
  Country: None (occurrence: None)
  Receive Date: 20081013
  Receipt Date: 20080929
  Transmission Date: 20090506
  Serious: Yes (Other)
  Sender: FDA-Public Use
  Company Number: US-GENENTECH-269366

PATIENT
  Age: 64 Year
  Sex: Male

DRUGS (4)
  1. RITUXAN [Suspect]
     Indication: CHOLANGITIS SCLEROSING
     Dosage: 375 MG/M2, 1/WEEK
     Dates: start: 20060101
  2. RITUXAN [Suspect]
     Dosage: 375 MG/M2, Q3M
  3. PREDNISONE [Concomitant]
     Indication: DRUG USE FOR UNKNOWN INDICATION
  4. MERCAPTOPURINE [Concomitant]
     Indication: DRUG USE FOR UNKNOWN INDICATION

REACTIONS (2)
  - GASTRIC VARICES [None]
  - UPPER GASTROINTESTINAL HAEMORRHAGE [None]
